FAERS Safety Report 9567098 (Version 1)
Quarter: 2013Q3

REPORT INFORMATION
  Report Type: Spontaneous
  Country: US (occurrence: US)
  Receive Date: 20130930
  Receipt Date: 20130930
  Transmission Date: 20140515
  Serious: No
  Sender: FDA-Public Use
  Company Number: US-AMGEN-USASP2012061993

PATIENT
  Age: 54 Year
  Sex: Female

DRUGS (8)
  1. ENBREL [Suspect]
     Indication: RHEUMATOID ARTHRITIS
     Dosage: 50 MG, QWK
     Route: 058
  2. METHOTREXATE [Concomitant]
     Dosage: 2.5 MG, UNK
  3. FOLIC ACID [Concomitant]
     Dosage: UNK
  4. LEVOXYL [Concomitant]
     Dosage: 125 MUG, UNK
  5. PEPCID AC [Concomitant]
     Dosage: 20 MG, UNK
  6. CELEBREX [Concomitant]
     Dosage: 200 MG, UNK
  7. B COMPLEX                          /00212701/ [Concomitant]
     Dosage: UNK
  8. PAXIL [Concomitant]
     Dosage: 30 MG, UNK

REACTIONS (1)
  - Injection site erythema [Unknown]
